FAERS Safety Report 19612598 (Version 12)
Quarter: 2021Q4

REPORT INFORMATION
  Report Type: Spontaneous
  Country: GB (occurrence: GB)
  Receive Date: 20210727
  Receipt Date: 20211112
  Transmission Date: 20220303
  Serious: Yes (Death, Hospitalization, Other)
  Sender: FDA-Public Use
  Company Number: GB-ROCHE-2680153

PATIENT
  Age: 55 Year
  Sex: Female

DRUGS (100)
  1. DOCETAXEL [Suspect]
     Active Substance: DOCETAXEL
     Indication: Breast cancer metastatic
     Dosage: 130 MG, Q3W
     Route: 042
     Dates: start: 20170525, end: 20170525
  2. DOCETAXEL [Suspect]
     Active Substance: DOCETAXEL
     Dosage: 130 MG
  3. CAPECITABINE [Suspect]
     Active Substance: CAPECITABINE
     Indication: Breast cancer metastatic
     Dosage: 3 MG, QD
     Route: 048
     Dates: start: 20200525, end: 20200525
  4. CAPECITABINE [Suspect]
     Active Substance: CAPECITABINE
     Dosage: 1300 MG
     Route: 048
     Dates: start: 20201020
  5. CAPECITABINE [Suspect]
     Active Substance: CAPECITABINE
     Dosage: UNK
  6. CAPECITABINE [Suspect]
     Active Substance: CAPECITABINE
     Dosage: 3 MG
     Dates: start: 20201020
  7. TRASTUZUMAB [Suspect]
     Active Substance: TRASTUZUMAB
     Indication: Breast cancer female
     Dosage: 525 MG, Q3W
     Route: 041
     Dates: start: 20170524, end: 20170524
  8. TRASTUZUMAB [Suspect]
     Active Substance: TRASTUZUMAB
     Dosage: 400 MG, Q3W
     Route: 041
     Dates: start: 20170614, end: 20180425
  9. TRASTUZUMAB [Suspect]
     Active Substance: TRASTUZUMAB
     Dosage: 378 MG, Q3W
     Route: 041
     Dates: start: 20180516, end: 20190327
  10. TRASTUZUMAB [Suspect]
     Active Substance: TRASTUZUMAB
     Dosage: 420 MG, Q3W
     Route: 041
     Dates: start: 20170614, end: 20190327
  11. PACLITAXEL [Suspect]
     Active Substance: PACLITAXEL
     Indication: Breast cancer female
     Dosage: 375 MG, Q3W
     Route: 042
     Dates: start: 20170705, end: 20170726
  12. PACLITAXEL [Suspect]
     Active Substance: PACLITAXEL
     Dosage: 300 MG, Q3W
     Route: 042
     Dates: start: 20170816, end: 20170906
  13. PACLITAXEL [Suspect]
     Active Substance: PACLITAXEL
     Dosage: 450 MG, Q3W
     Route: 042
     Dates: start: 20170614, end: 20170614
  14. PACLITAXEL [Suspect]
     Active Substance: PACLITAXEL
     Indication: Breast cancer female
     Dosage: 450 MG, Q3W
     Route: 042
     Dates: start: 20170614, end: 20170614
  15. PACLITAXEL [Suspect]
     Active Substance: PACLITAXEL
     Dosage: 375 MG EVERY 3 WEEKS
     Route: 042
     Dates: start: 20170705, end: 20170726
  16. PACLITAXEL [Suspect]
     Active Substance: PACLITAXEL
     Dosage: 300 MG, Q3W
     Route: 042
     Dates: start: 20170816, end: 20170906
  17. PACLITAXEL [Suspect]
     Active Substance: PACLITAXEL
     Dosage: 375 MG EVERY 3 WEEKS
     Route: 042
     Dates: start: 20170816, end: 20170906
  18. ERIBULIN MESYLATE [Suspect]
     Active Substance: ERIBULIN MESYLATE
     Indication: Breast cancer female
     Dosage: 1.85 MG
     Route: 042
     Dates: start: 20200611, end: 20200820
  19. ERIBULIN MESYLATE [Suspect]
     Active Substance: ERIBULIN MESYLATE
     Indication: Breast cancer metastatic
     Dosage: UNK
  20. NERATINIB [Suspect]
     Active Substance: NERATINIB
     Indication: Breast cancer female
     Dosage: 240 MG, QD
     Route: 048
     Dates: start: 20200919, end: 20201104
  21. PERTUZUMAB [Suspect]
     Active Substance: PERTUZUMAB
     Indication: Breast cancer female
     Dosage: 840 MG, Q3W
     Route: 042
     Dates: start: 20170524, end: 20170524
  22. PERTUZUMAB [Suspect]
     Active Substance: PERTUZUMAB
     Dosage: 420 MG, Q3W
     Route: 042
     Dates: start: 20170614, end: 20190327
  23. PERTUZUMAB [Suspect]
     Active Substance: PERTUZUMAB
     Dosage: 1125 MG, Q3W
     Route: 042
     Dates: start: 20170705, end: 20170726
  24. PERTUZUMAB [Suspect]
     Active Substance: PERTUZUMAB
     Dosage: 900 MG, Q3W
     Route: 042
     Dates: start: 20170816, end: 20170906
  25. PERTUZUMAB [Suspect]
     Active Substance: PERTUZUMAB
     Dosage: 300 MG, Q3W
     Route: 042
     Dates: start: 20170816, end: 20170906
  26. ADO-TRASTUZUMAB EMTANSINE [Suspect]
     Active Substance: ADO-TRASTUZUMAB EMTANSINE
     Indication: Breast cancer female
     Dosage: 240 MG, Q3W
     Route: 042
     Dates: start: 20190427, end: 20190606
  27. ADO-TRASTUZUMAB EMTANSINE [Suspect]
     Active Substance: ADO-TRASTUZUMAB EMTANSINE
     Dosage: 200 MG, Q3W
     Route: 042
     Dates: start: 20190627, end: 20190718
  28. ADO-TRASTUZUMAB EMTANSINE [Suspect]
     Active Substance: ADO-TRASTUZUMAB EMTANSINE
     Dosage: 160 MG, Q3W
     Route: 042
     Dates: start: 20190829, end: 20200326
  29. ADO-TRASTUZUMAB EMTANSINE [Suspect]
     Active Substance: ADO-TRASTUZUMAB EMTANSINE
     Dosage: 200 MG, Q3W
     Route: 042
     Dates: start: 20190627, end: 20190718
  30. CALCIUM\CHOLECALCIFEROL [Concomitant]
     Active Substance: CALCIUM\CHOLECALCIFEROL
     Indication: Product used for unknown indication
     Dosage: 1 DF
     Route: 065
  31. CALCIUM\CHOLECALCIFEROL [Concomitant]
     Active Substance: CALCIUM\CHOLECALCIFEROL
     Dosage: 1 DOSAGE FORM, TID
     Route: 048
     Dates: start: 20170525, end: 20210205
  32. CALCIUM\CHOLECALCIFEROL [Concomitant]
     Active Substance: CALCIUM\CHOLECALCIFEROL
     Dosage: 1 DF, TID
     Route: 048
  33. CEFUROXIME [Concomitant]
     Active Substance: CEFUROXIME
     Indication: Product contamination microbial
     Dosage: 250 MG, BID
     Route: 048
     Dates: start: 20201028
  34. CEFUROXIME [Concomitant]
     Active Substance: CEFUROXIME
     Dosage: 250 MG, BID
     Route: 048
     Dates: start: 20200925, end: 20201019
  35. CIPROFLOXACIN [Concomitant]
     Active Substance: CIPROFLOXACIN
     Indication: Abdominal pain upper
     Dosage: UNK
     Route: 065
     Dates: start: 20200707, end: 202007
  36. CIPROFLOXACIN [Concomitant]
     Active Substance: CIPROFLOXACIN
     Indication: Cholecystitis acute
     Dosage: UNK
     Route: 065
     Dates: start: 20200909, end: 20200916
  37. CIPROFLOXACIN [Concomitant]
     Active Substance: CIPROFLOXACIN
     Dosage: UNK
  38. CEFTRIAXONE [Concomitant]
     Active Substance: CEFTRIAXONE
     Indication: Product contamination microbial
     Dosage: 2 G, QD
     Route: 042
  39. CEFTRIAXONE [Concomitant]
     Active Substance: CEFTRIAXONE
     Dosage: UNK
     Route: 042
  40. CEFTRIAXONE [Concomitant]
     Active Substance: CEFTRIAXONE
     Dosage: 250 MG, BID
     Route: 048
     Dates: start: 20200928, end: 20201012
  41. LANSOPRAZOLE [Concomitant]
     Active Substance: LANSOPRAZOLE
     Indication: Gastritis
     Dosage: 30 MG, QD
     Route: 048
     Dates: start: 20190730, end: 202010
  42. LANSOPRAZOLE [Concomitant]
     Active Substance: LANSOPRAZOLE
     Dosage: UNK
     Route: 065
  43. LOPERAMIDE [Concomitant]
     Active Substance: LOPERAMIDE
     Indication: Product used for unknown indication
     Dosage: 2 MG, PRN
     Route: 048
     Dates: start: 20170613, end: 20201113
  44. LOPERAMIDE [Concomitant]
     Active Substance: LOPERAMIDE
     Dosage: UNK
  45. METRONIDAZOLE [Concomitant]
     Active Substance: METRONIDAZOLE
     Indication: Duodenal ulcer
     Dosage: UNK
     Route: 065
     Dates: start: 20200909, end: 20200914
  46. METRONIDAZOLE [Concomitant]
     Active Substance: METRONIDAZOLE
     Indication: Abdominal pain upper
     Dosage: UNK
     Route: 042
     Dates: start: 20200630, end: 20200709
  47. METRONIDAZOLE [Concomitant]
     Active Substance: METRONIDAZOLE
     Indication: Cholecystitis acute
     Dosage: 2 MG, QD
     Route: 042
     Dates: start: 20200925, end: 20200927
  48. METRONIDAZOLE [Concomitant]
     Active Substance: METRONIDAZOLE
     Dosage: 400 MG, QM
     Route: 048
     Dates: start: 20201116, end: 202011
  49. METRONIDAZOLE [Concomitant]
     Active Substance: METRONIDAZOLE
     Dosage: UNK
  50. ACETAMINOPHEN [Concomitant]
     Active Substance: ACETAMINOPHEN
     Indication: Product used for unknown indication
     Dosage: 1 IU
     Route: 048
     Dates: start: 20170525, end: 20210205
  51. ACETAMINOPHEN [Concomitant]
     Active Substance: ACETAMINOPHEN
     Dosage: UNK
     Route: 048
     Dates: start: 20170525, end: 20210205
  52. ACETAMINOPHEN [Concomitant]
     Active Substance: ACETAMINOPHEN
     Dosage: UNK
  53. ACETAMINOPHEN [Concomitant]
     Active Substance: ACETAMINOPHEN
     Dosage: 1 IU
     Route: 048
     Dates: start: 20170525
  54. TEICOPLANIN [Concomitant]
     Active Substance: TEICOPLANIN
     Indication: Biliary sepsis
     Dosage: UNK
     Route: 042
     Dates: start: 20200502, end: 20200515
  55. TEICOPLANIN [Concomitant]
     Active Substance: TEICOPLANIN
     Indication: Product contamination microbial
     Dosage: UNK
     Route: 042
     Dates: start: 20201028, end: 20201104
  56. TEICOPLANIN [Concomitant]
     Active Substance: TEICOPLANIN
     Dosage: UNK
     Route: 042
     Dates: start: 20200925, end: 20200925
  57. ZOLEDRONIC ACID [Concomitant]
     Active Substance: ZOLEDRONIC ACID
     Indication: Product used for unknown indication
     Dosage: 4 MG
     Route: 042
     Dates: start: 20170525, end: 20201022
  58. ZOLEDRONIC ACID [Concomitant]
     Active Substance: ZOLEDRONIC ACID
     Dosage: UNK
     Route: 065
  59. AMITRIPTYLINE [Concomitant]
     Active Substance: AMITRIPTYLINE
     Indication: Depressed mood
     Dosage: 120 MG
     Route: 048
  60. AMITRIPTYLINE [Concomitant]
     Active Substance: AMITRIPTYLINE
     Dosage: 5 MG, QD
     Route: 048
     Dates: start: 20190827, end: 20190919
  61. AMITRIPTYLINE [Concomitant]
     Active Substance: AMITRIPTYLINE
     Dosage: 1660 MILLIGRAM, QD
     Route: 048
     Dates: start: 20190827, end: 20190919
  62. AZTREONAM [Concomitant]
     Active Substance: AZTREONAM
     Indication: Product contamination microbial
     Dosage: UNK
     Route: 042
     Dates: start: 20201028, end: 20201104
  63. CETIRIZINE [Concomitant]
     Active Substance: CETIRIZINE HYDROCHLORIDE
     Indication: Urticaria papular
     Dosage: UNK UNK, QD
     Route: 048
     Dates: start: 20190313, end: 2019
  64. CETIRIZINE [Concomitant]
     Active Substance: CETIRIZINE HYDROCHLORIDE
     Dosage: UNK
  65. CHLORHEXIDINE GLUCONATE [Concomitant]
     Active Substance: CHLORHEXIDINE GLUCONATE
     Indication: Product used for unknown indication
     Dosage: 10 ML, FREQ:.25 D
     Route: 061
     Dates: start: 20170525, end: 2017
  66. CHLORHEXIDINE GLUCONATE [Concomitant]
     Active Substance: CHLORHEXIDINE GLUCONATE
     Dosage: 40 ML
     Route: 061
     Dates: start: 20170525, end: 2017
  67. CHLORPHENIRAMINE [Concomitant]
     Active Substance: CHLORPHENIRAMINE
     Indication: Product used for unknown indication
     Dosage: UNK
  68. CHLORPHENIRAMINE [Concomitant]
     Active Substance: CHLORPHENIRAMINE
     Dosage: 4 MILLIGRAM, QID
     Route: 048
     Dates: start: 20170526, end: 20170530
  69. CLOBETASOL PROPIONATE [Concomitant]
     Active Substance: CLOBETASOL PROPIONATE
     Indication: Product used for unknown indication
     Dosage: 0.05 %, BID
     Route: 061
     Dates: start: 20170210, end: 201708
  70. DOMPERIDONE [Concomitant]
     Active Substance: DOMPERIDONE
     Indication: Product used for unknown indication
     Dosage: UNK
  71. DOMPERIDONE [Concomitant]
     Active Substance: DOMPERIDONE
     Dosage: 10 MG, TID
     Route: 048
     Dates: start: 20170523, end: 20170526
  72. FUSIDIC ACID [Concomitant]
     Active Substance: FUSIDIC ACID
     Indication: Rhinitis
     Dosage: UNK
     Route: 065
     Dates: start: 201905, end: 201905
  73. FUSIDIC ACID [Concomitant]
     Active Substance: FUSIDIC ACID
     Dosage: UNK
     Route: 065
  74. SORBINICATE [Concomitant]
     Active Substance: SORBINICATE
     Indication: Product used for unknown indication
     Dosage: UNK
  75. SORBINICATE [Concomitant]
     Active Substance: SORBINICATE
     Dosage: UNK, (1 SPRAY)
     Route: 060
     Dates: start: 20170526, end: 2017
  76. TINZAPARIN [Concomitant]
     Active Substance: TINZAPARIN
     Indication: Product used for unknown indication
     Dosage: UNK UNK, QD
     Route: 058
     Dates: start: 20170713, end: 20190723
  77. TINZAPARIN [Concomitant]
     Active Substance: TINZAPARIN
     Dosage: 4500 INTERNATIONAL UNIT, QD
     Route: 058
     Dates: start: 20190916, end: 20191008
  78. TINZAPARIN [Concomitant]
     Active Substance: TINZAPARIN
     Dosage: UNK
  79. TRANEXAMIC ACID [Concomitant]
     Active Substance: TRANEXAMIC ACID
     Indication: Coagulopathy
     Dosage: 1 GRAM, TID (UNCHECKED ONGOING 1 G (GRAM) TABLET PO (ORAL) TID )
     Route: 048
     Dates: start: 20201111, end: 20201112
  80. TRANEXAMIC ACID [Concomitant]
     Active Substance: TRANEXAMIC ACID
     Indication: Duodenal ulcer
     Dosage: 1 G, TID
     Route: 048
     Dates: start: 20201112, end: 20201113
  81. TRANEXAMIC ACID [Concomitant]
     Active Substance: TRANEXAMIC ACID
     Dosage: 6 G
     Route: 065
     Dates: start: 20190722, end: 201907
  82. TRANEXAMIC ACID [Concomitant]
     Active Substance: TRANEXAMIC ACID
     Dosage: UNK
     Dates: start: 20190722, end: 201907
  83. VANCOMYCIN [Concomitant]
     Active Substance: VANCOMYCIN
     Indication: Clostridium difficile infection
     Dosage: 125 MG, QID
     Route: 048
     Dates: start: 20201113
  84. VANCOMYCIN [Concomitant]
     Active Substance: VANCOMYCIN
     Dosage: 125 MG, QID
     Route: 048
  85. VANCOMYCIN [Concomitant]
     Active Substance: VANCOMYCIN
     Dosage: 125 MG, QID
     Route: 048
     Dates: start: 20201030, end: 20201104
  86. VANCOMYCIN [Concomitant]
     Active Substance: VANCOMYCIN
     Dosage: 500 MG
     Route: 048
     Dates: start: 20201104, end: 20201113
  87. VANCOMYCIN [Concomitant]
     Active Substance: VANCOMYCIN
     Dosage: 125 MG, QID
  88. CHLORPHENIRAMINE MALEATE [Concomitant]
     Active Substance: CHLORPHENIRAMINE MALEATE
     Indication: Product used for unknown indication
     Dosage: 4 MG, FREQ:.25 D
     Route: 048
     Dates: start: 20170526, end: 20170530
  89. CLOBETASOL [Concomitant]
     Active Substance: CLOBETASOL
     Indication: Product used for unknown indication
     Dosage: UNK
  90. CLOBETASOL [Concomitant]
     Active Substance: CLOBETASOL
     Dosage: UNK
  91. CLOBETASOL [Concomitant]
     Active Substance: CLOBETASOL
     Dosage: UNK
  92. CLOBETASOL [Concomitant]
     Active Substance: CLOBETASOL
     Dosage: UNK
     Route: 061
     Dates: start: 20170210, end: 201708
  93. CYCLOSPORINE [Concomitant]
     Active Substance: CYCLOSPORINE
     Indication: Blepharitis
     Dosage: UNK
     Route: 047
     Dates: start: 201708, end: 2018
  94. CYCLOSPORINE [Concomitant]
     Active Substance: CYCLOSPORINE
     Dosage: UNK
     Route: 065
  95. POTASSIUM BICARBONATE\POTASSIUM CHLORIDE [Concomitant]
     Active Substance: POTASSIUM BICARBONATE\POTASSIUM CHLORIDE
     Indication: Product used for unknown indication
     Dosage: 1 DF
     Route: 048
     Dates: start: 20170525, end: 20170529
  96. POTASSIUM BICARBONATE\POTASSIUM CHLORIDE [Concomitant]
     Active Substance: POTASSIUM BICARBONATE\POTASSIUM CHLORIDE
     Dosage: UNK
     Route: 065
  97. POTASSIUM BICARBONATE\POTASSIUM CHLORIDE [Concomitant]
     Active Substance: POTASSIUM BICARBONATE\POTASSIUM CHLORIDE
     Dosage: 1 DOSAGE FORM, BID
     Dates: start: 20170525, end: 20170529
  98. CHOLECALCIFEROL [Concomitant]
     Active Substance: CHOLECALCIFEROL
     Indication: Product contamination microbial
     Dosage: 250 MILLIGRAM BID
     Route: 048
     Dates: start: 20200928, end: 20201012
  99. POTASSIUM CHLORIDE [Concomitant]
     Active Substance: POTASSIUM CHLORIDE
     Indication: Product used for unknown indication
  100. CARBOXYMETHYLCELLULOSE SODIUM [Concomitant]
     Active Substance: CARBOXYMETHYLCELLULOSE SODIUM

REACTIONS (6)
  - Disease progression [Fatal]
  - Breast cancer [Fatal]
  - Pyrexia [Recovered/Resolved]
  - Abdominal pain [Recovered/Resolved]
  - Pyrexia [Recovered/Resolved]
  - Off label use [Unknown]

NARRATIVE: CASE EVENT DATE: 20200724
